FAERS Safety Report 8568093 (Version 10)
Quarter: 2013Q1

REPORT INFORMATION
  Report Type: Report from Study
  Country: GR (occurrence: GR)
  Receive Date: 20120518
  Receipt Date: 20130213
  Transmission Date: 20140127
  Serious: Yes (Death, Hospitalization)
  Sender: FDA-Public Use
  Company Number: GR-JNJFOC-20120509106

PATIENT
  Age: 79 Year
  Sex: Male

DRUGS (20)
  1. ABIRATERONE ACETATE [Suspect]
     Indication: PROSTATE CANCER METASTATIC
     Route: 048
     Dates: start: 20091222, end: 20100923
  2. ABIRATERONE ACETATE [Suspect]
     Indication: PROSTATE CANCER METASTATIC
     Route: 048
     Dates: start: 20100930, end: 20120505
  3. PREDNISOLONE [Suspect]
     Indication: PROSTATE CANCER METASTATIC
     Route: 048
     Dates: start: 20091222, end: 20100923
  4. PREDNISOLONE [Suspect]
     Indication: PROSTATE CANCER METASTATIC
     Route: 048
     Dates: start: 20100924, end: 20120504
  5. TIOTROPIUM [Concomitant]
     Indication: CHRONIC OBSTRUCTIVE PULMONARY DISEASE
     Route: 055
     Dates: start: 199401
  6. LANSOPRAZOLE [Concomitant]
     Indication: GASTROINTESTINAL DISORDER THERAPY
     Dosage: AS REQUIRED
     Route: 048
     Dates: start: 200801
  7. BUDESONIDE [Concomitant]
     Indication: CHRONIC OBSTRUCTIVE PULMONARY DISEASE
     Route: 055
     Dates: start: 199401
  8. ARVEKAP [Concomitant]
     Indication: HORMONE THERAPY
     Route: 030
     Dates: start: 20060929
  9. ARVEKAP [Concomitant]
     Indication: HORMONE THERAPY
     Route: 030
     Dates: start: 20091222
  10. ARVEKAP [Concomitant]
     Indication: PROSTATE CANCER
     Route: 030
     Dates: start: 20091222
  11. ARVEKAP [Concomitant]
     Indication: PROSTATE CANCER
     Route: 030
     Dates: start: 20060929
  12. STALEVO [Concomitant]
     Indication: EXTRAPYRAMIDAL DISORDER
     Route: 048
     Dates: start: 20101101
  13. LAPRAZOL [Concomitant]
     Indication: GASTROINTESTINAL DISORDER THERAPY
     Route: 048
     Dates: start: 20101001
  14. ZOLEDRONIC ACID [Concomitant]
     Indication: PROPHYLAXIS
     Route: 042
  15. DEPON [Concomitant]
     Indication: BONE PAIN
     Route: 048
     Dates: start: 20101001
  16. DEPON [Concomitant]
     Indication: CANCER PAIN
     Route: 048
  17. LONALGAL [Concomitant]
     Indication: CANCER PAIN
     Route: 048
     Dates: start: 20111025
  18. LONARID-N [Concomitant]
     Indication: CANCER PAIN
     Route: 048
     Dates: start: 20120313
  19. DUROGESIC [Concomitant]
     Indication: CANCER PAIN
     Route: 062
     Dates: start: 20120411, end: 20120531
  20. ABSTRAL [Concomitant]
     Indication: CANCER PAIN
     Route: 048
     Dates: start: 20120411, end: 20120531

REACTIONS (1)
  - Urinary tract infection [Fatal]
